FAERS Safety Report 10231214 (Version 1)
Quarter: 2014Q2

REPORT INFORMATION
  Report Type: Spontaneous
  Country: US (occurrence: US)
  Receive Date: 20140611
  Receipt Date: 20140611
  Transmission Date: 20141212
  Serious: No
  Sender: FDA-Public Use
  Company Number: US-PFIZER INC-2014157481

PATIENT
  Age: 59 Year
  Sex: Female
  Weight: 61.68 kg

DRUGS (2)
  1. PREMARIN [Suspect]
     Indication: VULVOVAGINAL DRYNESS
     Dosage: UNK, 2X/WEEK
     Route: 067
     Dates: start: 2012, end: 201405
  2. METOPROLOL [Concomitant]
     Indication: HYPERTENSION
     Dosage: UNK, 2X/DAY

REACTIONS (2)
  - Bacterial vaginosis [Unknown]
  - Headache [Unknown]
